FAERS Safety Report 9776995 (Version 2)
Quarter: 2014Q1

REPORT INFORMATION
  Report Type: Report from Study
  Country: FR (occurrence: FR)
  Receive Date: 20131221
  Receipt Date: 20140131
  Transmission Date: 20141002
  Serious: Yes (Other)
  Sender: FDA-Public Use
  Company Number: FR-ROCHE-1319736

PATIENT
  Age: 67 Year
  Sex: Female

DRUGS (14)
  1. RITUXIMAB [Suspect]
     Indication: RHEUMATOID ARTHRITIS
     Dosage: 1G TWICE DAILY (D1)
     Route: 065
     Dates: start: 20081110
  2. RITUXIMAB [Suspect]
     Dosage: 1 G (D15)
     Route: 065
     Dates: start: 20081201
  3. RITUXIMAB [Suspect]
     Dosage: 1G TWICE DAILY (D1)
     Route: 065
     Dates: start: 20100217
  4. RITUXIMAB [Suspect]
     Dosage: 1G (D15)
     Route: 065
     Dates: start: 20100311
  5. RITUXIMAB [Suspect]
     Dosage: 1G TWICE DAILY (D1) ON 06 JAN 2011.
     Route: 065
     Dates: start: 20110106
  6. RITUXIMAB [Suspect]
     Dosage: 1G (D15)
     Route: 065
     Dates: start: 20110120
  7. LEFLUNOMIDE [Concomitant]
     Route: 065
     Dates: start: 20081110
  8. LEFLUNOMIDE [Concomitant]
     Route: 065
     Dates: start: 20100217
  9. LEFLUNOMIDE [Concomitant]
     Route: 065
     Dates: start: 20110106
  10. CORTANCYL [Concomitant]
     Dosage: 2 MG DAILY.
     Route: 065
     Dates: start: 20081110
  11. CORTANCYL [Concomitant]
     Route: 065
     Dates: start: 20100217
  12. CORTANCYL [Concomitant]
     Route: 065
     Dates: start: 20100311
  13. CORTANCYL [Concomitant]
     Route: 065
     Dates: start: 20110106
  14. CORTANCYL [Concomitant]
     Route: 065
     Dates: start: 20110120

REACTIONS (5)
  - Lymphopenia [Not Recovered/Not Resolved]
  - Bronchitis [Recovered/Resolved]
  - Nausea [Recovered/Resolved]
  - Hyperhidrosis [Recovered/Resolved]
  - Abdominal pain upper [Unknown]
